FAERS Safety Report 6328609-9 (Version None)
Quarter: 2009Q3

REPORT INFORMATION
  Report Type: 
  Country: None (occurrence: None)
  Receive Date: 20090824
  Receipt Date: 20090824
  Transmission Date: 20100115
  Serious: Yes (Hospitalization)
  Sender: FDA-Public Use
  Company Number: None

PATIENT
  Sex: Male
  Weight: 65.4 kg

DRUGS (1)
  1. SORAFENIB 400MG BID [Suspect]
     Indication: PROSTATE CANCER METASTATIC
     Dosage: 400MG BID PO
     Route: 048
     Dates: start: 20090716, end: 20090811

REACTIONS (6)
  - BLOOD PRESSURE ABNORMAL [None]
  - CHEST DISCOMFORT [None]
  - CHEST PAIN [None]
  - HYPERTENSION [None]
  - METASTASES TO BONE [None]
  - TUMOUR PAIN [None]
